FAERS Safety Report 7700400-8 (Version None)
Quarter: 2011Q3

REPORT INFORMATION
  Report Type: 
  Country: None (occurrence: None)
  Receive Date: 20110822
  Receipt Date: 20110818
  Transmission Date: 20111222
  Serious: Yes (Other)
  Sender: FDA-Public Use
  Company Number: DE-SANOFI-AVENTIS-2011SA050457

PATIENT
  Age: 27 Year
  Sex: Female

DRUGS (4)
  1. ENOXAPARIN SODIUM [Suspect]
     Indication: VARICOSE VEIN
     Route: 058
     Dates: start: 20081101, end: 20090101
  2. FOLIC ACID [Concomitant]
     Indication: PROPHYLAXIS
     Route: 048
     Dates: start: 20080822, end: 20090128
  3. FERROUS SULFATE TAB [Concomitant]
     Indication: ANAEMIA
     Route: 048
     Dates: start: 20080101, end: 20090128
  4. MAGNESIUM [Concomitant]
     Indication: ILL-DEFINED DISORDER
     Route: 065
     Dates: start: 20081107, end: 20081107

REACTIONS (4)
  - CYSTITIS [None]
  - PREMATURE LABOUR [None]
  - MATERNAL EXPOSURE DURING PREGNANCY [None]
  - HELLP SYNDROME [None]
